FAERS Safety Report 10199303 (Version 1)
Quarter: 2014Q2

REPORT INFORMATION
  Report Type: Spontaneous
  Country: US (occurrence: US)
  Receive Date: 20140527
  Receipt Date: 20140527
  Transmission Date: 20141212
  Serious: No
  Sender: FDA-Public Use
  Company Number: US-NOVEN-13US008500

PATIENT
  Sex: 0

DRUGS (3)
  1. DAYTRANA [Suspect]
     Indication: ATTENTION DEFICIT/HYPERACTIVITY DISORDER
     Dosage: 10 MG, UNK
     Route: 062
     Dates: start: 2010
  2. CLARITIN                           /00917501/ [Concomitant]
     Indication: HYPERSENSITIVITY
     Dosage: UNK
     Route: 048
  3. PULMICORT [Concomitant]
     Indication: ASTHMA
     Route: 050

REACTIONS (3)
  - Psychomotor hyperactivity [Not Recovered/Not Resolved]
  - Incorrect drug administration duration [Not Recovered/Not Resolved]
  - Product quality issue [Not Recovered/Not Resolved]
